FAERS Safety Report 9295368 (Version 1)
Quarter: 2013Q2

REPORT INFORMATION
  Report Type: Spontaneous
  Country: TW (occurrence: TW)
  Receive Date: 20130517
  Receipt Date: 20130517
  Transmission Date: 20140414
  Serious: Yes (Death, Other)
  Sender: FDA-Public Use
  Company Number: TW-ROXANE LABORATORIES, INC.-2013-RO-00743RO

PATIENT
  Age: 63 Year
  Sex: Female

DRUGS (5)
  1. AZATHIOPRINE [Suspect]
     Indication: RHEUMATOID ARTHRITIS
  2. ETANERCEPT [Suspect]
     Indication: RHEUMATOID ARTHRITIS
  3. SULFASALAZINE [Suspect]
     Indication: RHEUMATOID ARTHRITIS
  4. LEFLUNOMIDE [Suspect]
     Indication: RHEUMATOID ARTHRITIS
  5. HYDROXYCHLOROQUINE [Suspect]
     Indication: RHEUMATOID ARTHRITIS

REACTIONS (3)
  - Death [Fatal]
  - Pulmonary tuberculosis [Unknown]
  - Meningitis tuberculous [Unknown]
